FAERS Safety Report 7782797-6 (Version None)
Quarter: 2011Q3

REPORT INFORMATION
  Report Type: 
  Country: None (occurrence: None)
  Receive Date: 20110928
  Receipt Date: 20110926
  Transmission Date: 20111222
  Serious: Yes (Other)
  Sender: FDA-Public Use
  Company Number: PT-PFIZER INC-2011220987

PATIENT
  Age: 63 Year
  Sex: Male

DRUGS (1)
  1. SUTENT [Suspect]
     Dosage: 50 MG, 1X/DAY
     Route: 048
     Dates: start: 20091201, end: 20110401

REACTIONS (3)
  - MUCOSAL INFLAMMATION [None]
  - OESOPHAGEAL ULCER [None]
  - MALLORY-WEISS SYNDROME [None]
